FAERS Safety Report 5238293-3 (Version None)
Quarter: 2007Q1

REPORT INFORMATION
  Report Type: 
  Country: None (occurrence: None)
  Receive Date: 20070215
  Receipt Date: 20070205
  Transmission Date: 20070707
  Serious: Yes (Hospitalization)
  Sender: FDA-Public Use
  Company Number: PHEH2007US01738

PATIENT
  Age: 74 Year
  Sex: Male

DRUGS (5)
  1. GANCICLOVIR [Concomitant]
     Dates: end: 20061201
  2. CYCLOSPORINE [Suspect]
     Indication: RENAL TRANSPLANT
     Route: 048
     Dates: start: 20060101, end: 20061201
  3. NIASPAN [Suspect]
     Indication: HYPERLIPIDAEMIA
     Dosage: 500 MG, UNK
     Dates: end: 20061201
  4. SIMVASTATIN [Interacting]
     Dates: end: 20061201
  5. LYRICA [Concomitant]
     Indication: NEURALGIA

REACTIONS (12)
  - ALANINE AMINOTRANSFERASE INCREASED [None]
  - ARTHRALGIA [None]
  - ASPARTATE AMINOTRANSFERASE INCREASED [None]
  - BACK PAIN [None]
  - BLOOD CREATINE PHOSPHOKINASE INCREASED [None]
  - DRUG INTERACTION [None]
  - HEPATITIS TOXIC [None]
  - HYPERSENSITIVITY [None]
  - MUSCLE SPASMS [None]
  - MYALGIA [None]
  - NEURALGIA [None]
  - RHABDOMYOLYSIS [None]
